FAERS Safety Report 8372773-7 (Version None)
Quarter: 2012Q2

REPORT INFORMATION
  Report Type: 
  Country: None (occurrence: None)
  Receive Date: 20120521
  Receipt Date: 20120515
  Transmission Date: 20120825
  Serious: Yes (Other)
  Sender: FDA-Public Use
  Company Number: US-PFIZER INC-2012118151

PATIENT
  Sex: Female
  Weight: 104.31 kg

DRUGS (4)
  1. VENTOLIN [Concomitant]
     Dosage: UNK
  2. SINGULAIR [Concomitant]
     Dosage: UNK
  3. ADVAIR DISKUS 100/50 [Concomitant]
     Dosage: UNK
  4. NORVASC [Suspect]
     Indication: HYPERTENSION
     Dosage: 5 MG, UNK
     Dates: start: 20111201

REACTIONS (1)
  - HYPERSENSITIVITY [None]
